FAERS Safety Report 12858544 (Version 11)
Quarter: 2017Q3

REPORT INFORMATION
  Report Type: Spontaneous
  Country: KR (occurrence: KR)
  Receive Date: 20161018
  Receipt Date: 20170804
  Transmission Date: 20171127
  Serious: Yes (Hospitalization, Other)
  Sender: FDA-Public Use
  Company Number: KR-009507513-1610KOR008130

PATIENT
  Age: 63 Year
  Sex: Male
  Weight: 61.8 kg

DRUGS (45)
  1. EMEND (FOSAPREPITANT DIMEGLUMINE) [Suspect]
     Active Substance: FOSAPREPITANT DIMEGLUMINE
     Dosage: 150 MG, ONCE
     Route: 042
     Dates: start: 20161130, end: 20161130
  2. ENDOXAN [Concomitant]
     Active Substance: CYCLOPHOSPHAMIDE
     Dosage: 1320 MG, ONCE, CYCLE 4
     Route: 042
     Dates: start: 20161019, end: 20161019
  3. ENDOXAN [Concomitant]
     Active Substance: CYCLOPHOSPHAMIDE
     Dosage: 1320 MG, ONCE, CYCLE 5
     Route: 042
     Dates: start: 20161109, end: 20161109
  4. DOXORUBIN [Concomitant]
     Active Substance: DOXORUBICIN
     Dosage: 90 MG, ONCE, CYCLE 5; STRENGTH: 0.2% 5 ML
     Route: 042
     Dates: start: 20161109, end: 20161109
  5. MABTHERA [Concomitant]
     Active Substance: RITUXIMAB
     Indication: CHEMOTHERAPY
     Dosage: 660 MG, ONCE, CYCLE 3
     Route: 042
     Dates: start: 20160929, end: 20160929
  6. MABTHERA [Concomitant]
     Active Substance: RITUXIMAB
     Dosage: 660 MG, ONCE, CYCLE 4
     Route: 042
     Dates: start: 20161019, end: 20161019
  7. VINCRISTINE SULFATE. [Concomitant]
     Active Substance: VINCRISTINE SULFATE
     Dosage: 2 MG, ONCE, CYCLE 6; STRENGTH: 1MG/ML 1ML
     Route: 042
     Dates: start: 20161130, end: 20161130
  8. LEVOPRIDE [Concomitant]
     Indication: DYSPEPSIA
     Dosage: 1 TABLET, TID
     Route: 048
     Dates: start: 20160826
  9. TYLENOL EXTENDED RELIEF CAPLETS [Concomitant]
     Active Substance: ACETAMINOPHEN
     Dosage: 1 TABLET, ONCE
     Route: 048
     Dates: start: 20161019, end: 20161019
  10. TYLENOL EXTENDED RELIEF CAPLETS [Concomitant]
     Active Substance: ACETAMINOPHEN
     Dosage: 1 TABLET, ONCE
     Route: 048
     Dates: start: 20161130, end: 20161130
  11. DOXORUBIN [Concomitant]
     Active Substance: DOXORUBICIN
     Dosage: 90 MG, ONCE, CYCLE 4; STRENGTH: 0.2% 5 ML
     Route: 042
     Dates: start: 20161019, end: 20161019
  12. MACPERAN [Concomitant]
     Active Substance: METOCLOPRAMIDE HYDROCHLORIDE
     Indication: PROPHYLAXIS OF NAUSEA AND VOMITING
     Dosage: 1 TABLET, TID
     Route: 048
     Dates: start: 20160815, end: 20160926
  13. MEGACE [Concomitant]
     Active Substance: MEGESTROL ACETATE
     Indication: DECREASED APPETITE
     Dosage: 10 ML, QD
     Route: 048
     Dates: start: 20160927
  14. MEGACE [Concomitant]
     Active Substance: MEGESTROL ACETATE
     Indication: PROPHYLAXIS
     Dosage: 1 PKG, QD
     Route: 048
     Dates: start: 20161020, end: 20161025
  15. SYNACTHEN [Concomitant]
     Active Substance: COSYNTROPIN
     Indication: INVESTIGATION
     Dosage: 0.25 MG, ONCE; STRENGTH: 0.25MG/ML
     Route: 042
     Dates: start: 20160929, end: 20160929
  16. PENIRAMIN [Concomitant]
     Dosage: 4 MG, ONCE
     Route: 042
     Dates: start: 20161109, end: 20161109
  17. EMEND (FOSAPREPITANT DIMEGLUMINE) [Suspect]
     Active Substance: FOSAPREPITANT DIMEGLUMINE
     Dosage: 150 MG, ONCE
     Route: 042
     Dates: start: 20160929, end: 20160929
  18. EMEND (FOSAPREPITANT DIMEGLUMINE) [Suspect]
     Active Substance: FOSAPREPITANT DIMEGLUMINE
     Dosage: 150 MG, ONCE
     Route: 042
     Dates: start: 20161109, end: 20161109
  19. ENDOXAN [Concomitant]
     Active Substance: CYCLOPHOSPHAMIDE
     Indication: CHEMOTHERAPY
     Dosage: 1320 MG, ONCE, CYCLE 3
     Route: 042
     Dates: start: 20160929, end: 20160929
  20. ENDOXAN [Concomitant]
     Active Substance: CYCLOPHOSPHAMIDE
     Dosage: 1320 MG, ONCE, CYCLE 6
     Route: 042
     Dates: start: 20161130, end: 20161130
  21. DOXORUBIN [Concomitant]
     Active Substance: DOXORUBICIN
     Indication: CHEMOTHERAPY
     Dosage: 90 MG, ONCE, CYCLE 3; STRENGTH: 0.2% 5 ML
     Route: 042
     Dates: start: 20160929, end: 20160929
  22. VINCRISTINE SULFATE. [Concomitant]
     Active Substance: VINCRISTINE SULFATE
     Indication: CHEMOTHERAPY
     Dosage: 2 MG, ONCE, CYCLE 3; STRENGTH: 1MG/ML 1ML
     Route: 042
     Dates: start: 20160929, end: 20160929
  23. VINCRISTINE SULFATE. [Concomitant]
     Active Substance: VINCRISTINE SULFATE
     Dosage: 2 MG, ONCE, CYCLE 4; STRENGTH: 1MG/ML 1ML
     Route: 042
     Dates: start: 20161019, end: 20161019
  24. ALOXI [Concomitant]
     Active Substance: PALONOSETRON HYDROCHLORIDE
     Indication: PROPHYLAXIS OF NAUSEA AND VOMITING
     Dosage: 0.25 MG, ONCE
     Route: 042
     Dates: start: 20160929, end: 20160929
  25. NEXIUM [Concomitant]
     Active Substance: ESOMEPRAZOLE MAGNESIUM
     Indication: PROPHYLAXIS
     Dosage: 1 TABLET, QD
     Route: 048
     Dates: start: 20160907
  26. DENOGAN [Concomitant]
     Active Substance: PROPACETAMOL HYDROCHLORIDE
     Indication: PYREXIA
     Dosage: 1 G, ONCE
     Route: 042
     Dates: start: 20160928, end: 20160928
  27. DOXORUBIN [Concomitant]
     Active Substance: DOXORUBICIN
     Dosage: 90 MG, ONCE, CYCLE 6; STRENGTH: 0.2% 5 ML
     Route: 042
     Dates: start: 20161130, end: 20161130
  28. DENOGAN [Concomitant]
     Active Substance: PROPACETAMOL HYDROCHLORIDE
     Dosage: 1 G, ONCE
     Route: 042
     Dates: start: 20161127, end: 20161127
  29. PENIRAMIN [Concomitant]
     Indication: DRUG TOXICITY PROPHYLAXIS
     Dosage: 4 MG, ONCE
     Route: 042
     Dates: start: 20160929, end: 20160929
  30. MACPERAN [Concomitant]
     Active Substance: METOCLOPRAMIDE HYDROCHLORIDE
     Dosage: 2 TABLET, TID
     Route: 048
     Dates: start: 20161203, end: 20161206
  31. QUETAPIN [Concomitant]
     Indication: INSOMNIA
     Dosage: 1 TABLET, QD
     Route: 048
     Dates: start: 20160907
  32. TYLENOL EXTENDED RELIEF CAPLETS [Concomitant]
     Active Substance: ACETAMINOPHEN
     Indication: DRUG TOXICITY PROPHYLAXIS
     Dosage: 1 TABLET, ONCE
     Route: 048
     Dates: start: 20160929, end: 20160929
  33. EMEND (FOSAPREPITANT DIMEGLUMINE) [Suspect]
     Active Substance: FOSAPREPITANT DIMEGLUMINE
     Dosage: 150 MG, ONCE
     Route: 042
     Dates: start: 20161019, end: 20161019
  34. MABTHERA [Concomitant]
     Active Substance: RITUXIMAB
     Dosage: 660 MG, ONCE, CYCLE 6
     Route: 042
     Dates: start: 20161130, end: 20161130
  35. ALOXI [Concomitant]
     Active Substance: PALONOSETRON HYDROCHLORIDE
     Dosage: 0.25 MG, ONCE
     Route: 042
     Dates: start: 20161019, end: 20161019
  36. ALOXI [Concomitant]
     Active Substance: PALONOSETRON HYDROCHLORIDE
     Dosage: 0.25 MG, ONCE
     Route: 042
     Dates: start: 20161109, end: 20161109
  37. ALOXI [Concomitant]
     Active Substance: PALONOSETRON HYDROCHLORIDE
     Dosage: 0.25 MG, ONCE
     Route: 042
     Dates: start: 20161130, end: 20161130
  38. TYLENOL EXTENDED RELIEF CAPLETS [Concomitant]
     Active Substance: ACETAMINOPHEN
     Dosage: 1 TABLET, ONCE
     Route: 048
     Dates: start: 20161109, end: 20161109
  39. PENIRAMIN [Concomitant]
     Dosage: 4 MG, ONCE
     Route: 042
     Dates: start: 20161019, end: 20161019
  40. PENIRAMIN [Concomitant]
     Dosage: 4 MG, ONCE
     Route: 042
     Dates: start: 20161130, end: 20161130
  41. MAGO [Concomitant]
     Indication: CONSTIPATION PROPHYLAXIS
     Dosage: 1 CAPSULE, QD
     Route: 048
     Dates: start: 20160911, end: 20161016
  42. EMEND (FOSAPREPITANT DIMEGLUMINE) [Suspect]
     Active Substance: FOSAPREPITANT DIMEGLUMINE
     Indication: PROPHYLAXIS OF NAUSEA AND VOMITING
     Dosage: 150 MG, ONCE
     Route: 042
     Dates: start: 20160907, end: 20160907
  43. MABTHERA [Concomitant]
     Active Substance: RITUXIMAB
     Dosage: 660 MG, ONCE, CYCLE 5
     Route: 042
     Dates: start: 20161109, end: 20161109
  44. VINCRISTINE SULFATE. [Concomitant]
     Active Substance: VINCRISTINE SULFATE
     Dosage: 2 MG, ONCE, CYCLE 5; STRENGTH: 1MG/ML 1ML
     Route: 042
     Dates: start: 20161109, end: 20161109
  45. TARGIN PR [Concomitant]
     Indication: PAIN PROPHYLAXIS
     Dosage: 1 TABLET, QD
     Route: 048
     Dates: start: 20160808

REACTIONS (10)
  - Herpes simplex [Recovered/Resolved]
  - Pyrexia [Recovered/Resolved]
  - Pyrexia [Recovered/Resolved]
  - Adrenal insufficiency [Recovered/Resolved]
  - Pulmonary embolism [Recovered/Resolved]
  - Pneumonia [Recovered/Resolved]
  - Herpes virus infection [Recovered/Resolved]
  - Diarrhoea [Recovered/Resolved]
  - Oral candidiasis [Recovered/Resolved]
  - Oral candidiasis [Recovered/Resolved]

NARRATIVE: CASE EVENT DATE: 20160928
